FAERS Safety Report 4343908-8 (Version None)
Quarter: 2004Q2

REPORT INFORMATION
  Report Type: 
  Country: None (occurrence: None)
  Receive Date: 20040419
  Receipt Date: 20040407
  Transmission Date: 20050107
  Serious: Yes (Other)
  Sender: FDA-Public Use
  Company Number: 200410369BVD

PATIENT

DRUGS (1)
  1. AVELOX [Suspect]

REACTIONS (4)
  - APATHY [None]
  - SOMNOLENCE [None]
  - SPEECH DISORDER [None]
  - STUPOR [None]
